FAERS Safety Report 5927530-5 (Version None)
Quarter: 2008Q4

REPORT INFORMATION
  Report Type: 
  Country: None (occurrence: None)
  Receive Date: 20081023
  Receipt Date: 20081015
  Transmission Date: 20090506
  Serious: Yes (Hospitalization)
  Sender: FDA-Public Use
  Company Number: GB-JNJFOC-20081002024

PATIENT
  Age: 56 Year
  Sex: Male

DRUGS (13)
  1. HALOPERIDOL [Suspect]
     Indication: DRUG USE FOR UNKNOWN INDICATION
     Route: 058
  2. FENTANYL CITRATE [Suspect]
     Indication: PAIN
     Route: 048
  3. GABAPENTIN [Suspect]
     Indication: DRUG USE FOR UNKNOWN INDICATION
     Route: 065
  4. MORPHINE [Suspect]
     Indication: ANALGESIA
     Route: 065
  5. OXYCONTIN [Suspect]
     Indication: ANALGESIA
     Route: 065
  6. ACETAMINOPHEN [Suspect]
     Indication: ANALGESIA
     Route: 065
  7. ALFENTANIL [Suspect]
     Route: 058
  8. ALFENTANIL [Suspect]
     Route: 058
  9. ALFENTANIL [Suspect]
     Indication: DRUG ABUSE
     Route: 058
  10. HYDROMORPHONE HCL [Concomitant]
     Dosage: 1MG BOLUSES AT 20 MINUTE INTERVALS; 3 DOSES REQUIRED FOR FULL RESOLUTION.
     Route: 058
  11. HYDROMORPHONE HCL [Concomitant]
     Route: 058
  12. HYDROMORPHONE HCL [Concomitant]
     Route: 058
  13. HYDROMORPHONE HCL [Concomitant]
     Indication: ANALGESIA
     Route: 058

REACTIONS (6)
  - BACK PAIN [None]
  - DRUG EFFECT DECREASED [None]
  - DRUG WITHDRAWAL SYNDROME [None]
  - INFECTION [None]
  - RENAL IMPAIRMENT [None]
  - THERAPEUTIC AGENT TOXICITY [None]
